FAERS Safety Report 22142714 (Version 1)
Quarter: 2023Q1

REPORT INFORMATION
  Report Type: Spontaneous
  Country: JP (occurrence: JP)
  Receive Date: 20230327
  Receipt Date: 20230327
  Transmission Date: 20230418
  Serious: Yes (Other)
  Sender: FDA-Public Use
  Company Number: JP-JNJFOC-20230364080

PATIENT
  Age: 78 Year
  Sex: Female

DRUGS (2)
  1. OPSUMIT [Suspect]
     Active Substance: MACITENTAN
     Indication: Product used for unknown indication
     Dosage: DOSE UNKNOWN
     Route: 048
  2. RIOCIGUAT [Suspect]
     Active Substance: RIOCIGUAT
     Indication: Product used for unknown indication
     Route: 048

REACTIONS (2)
  - Pulmonary congestion [Recovered/Resolved]
  - Decreased appetite [Recovered/Resolved]
